FAERS Safety Report 8770062 (Version 2)
Quarter: 2013Q4

REPORT INFORMATION
  Report Type: Spontaneous
  Country: US (occurrence: US)
  Receive Date: 20120905
  Receipt Date: 20131101
  Transmission Date: 20140711
  Serious: No
  Sender: FDA-Public Use
  Company Number: US-009507513-1208USA002986

PATIENT
  Sex: Female

DRUGS (4)
  1. PEGINTRON [Suspect]
     Indication: HEPATITIS C
     Dosage: 150 MCG/0.5 ML, QW
     Route: 058
     Dates: start: 20120625, end: 20120809
  2. TELAPREVIR [Suspect]
     Indication: HEPATITIS C
     Dosage: 750 MG, TID
     Dates: start: 20120625, end: 20120809
  3. RIBAPAK [Suspect]
     Indication: HEPATITIS C
     Dosage: 600 MG, BID
     Dates: start: 20120625, end: 20120809
  4. SYNTHROID [Concomitant]
     Dosage: 100 MICROGRAM, QD

REACTIONS (3)
  - Dyspepsia [Unknown]
  - Dyspnoea [Unknown]
  - No therapeutic response [Unknown]
